FAERS Safety Report 23148049 (Version 1)
Quarter: 2023Q4

REPORT INFORMATION
  Report Type: Spontaneous
  Country: DK (occurrence: DK)
  Receive Date: 20231106
  Receipt Date: 20231106
  Transmission Date: 20240109
  Serious: Yes (Hospitalization)
  Sender: FDA-Public Use
  Company Number: None

PATIENT
  Age: 79 Year
  Sex: Female

DRUGS (1)
  1. ENALAPRIL\HYDROCHLOROTHIAZIDE [Suspect]
     Active Substance: ENALAPRIL\HYDROCHLOROTHIAZIDE
     Indication: Hypertension
     Dosage: STRENGTH: 20 MG +12.5 MG
     Route: 065
     Dates: start: 20230922, end: 20231003

REACTIONS (2)
  - Nausea [Recovered/Resolved]
  - Food aversion [Recovered/Resolved]

NARRATIVE: CASE EVENT DATE: 20231001
